FAERS Safety Report 7608823-2 (Version None)
Quarter: 2011Q3

REPORT INFORMATION
  Report Type: 
  Country: None (occurrence: None)
  Receive Date: 20110714
  Receipt Date: 20110704
  Transmission Date: 20111222
  Serious: Yes (Other)
  Sender: FDA-Public Use
  Company Number: AU-CELGENEUS-008-50794-11070091

PATIENT
  Sex: Female

DRUGS (65)
  1. OXYCONTIN [Concomitant]
     Indication: PAIN
     Dosage: 20 MILLIGRAM
     Route: 048
     Dates: end: 20110607
  2. THYROXIN [Concomitant]
     Indication: HYPOTHYROIDISM
     Dosage: 50 MICROGRAM
     Route: 048
  3. COLOXYL [Concomitant]
     Indication: CONSTIPATION
     Dosage: 2 DOSAGE FORMS
     Route: 048
     Dates: start: 20110602, end: 20110622
  4. METOCLOPRAMIDE [Concomitant]
     Indication: NAUSEA
     Dosage: 30 MILLIGRAM
     Route: 048
     Dates: start: 20110602, end: 20110615
  5. APREPITAN [Concomitant]
     Indication: NAUSEA
     Dosage: 125 MILLIGRAM
     Route: 048
     Dates: start: 20110617, end: 20110617
  6. SIMETHICONE [Concomitant]
     Route: 048
  7. SENNA [Concomitant]
     Indication: CONSTIPATION
     Dosage: 2 DOSAGE FORMS
     Route: 048
     Dates: start: 20110602, end: 20110622
  8. METOCLOPRAMIDE [Concomitant]
     Dosage: 30 MILLIGRAM
     Route: 051
     Dates: start: 20110602, end: 20110615
  9. POSACONAZOLE [Concomitant]
     Indication: PROPHYLAXIS
     Dosage: 600 MILLIGRAM
     Route: 048
     Dates: start: 20110603
  10. MOVIPREP [Concomitant]
     Indication: CONSTIPATION
     Dosage: 1 DOSAGE FORMS
     Route: 048
     Dates: start: 20110604, end: 20110606
  11. CYCLIZINE [Concomitant]
     Indication: NAUSEA
     Dosage: 50 MILLIGRAM
     Route: 058
     Dates: start: 20110610, end: 20110622
  12. APREPITAN [Concomitant]
     Dosage: 80 MILLIGRAM
     Route: 048
     Dates: start: 20110618, end: 20110619
  13. CEFEPIME [Concomitant]
     Indication: FEBRILE NEUTROPENIA
     Dosage: 6 GRAM
     Route: 051
     Dates: start: 20110622, end: 20110622
  14. FUROSEMIDE [Concomitant]
     Indication: OEDEMA
     Dosage: 20 MILLIGRAM
     Route: 048
     Dates: start: 20110624, end: 20110629
  15. FUROSEMIDE [Concomitant]
     Dosage: 40 MILLIGRAM
     Route: 048
     Dates: start: 20110629, end: 20110701
  16. FUROSEMIDE [Concomitant]
     Route: 051
     Dates: start: 20110630, end: 20110630
  17. FUROSEMIDE [Concomitant]
     Dosage: 40 MILLIGRAM
     Route: 051
     Dates: start: 20110704
  18. METRONIDAZOLE [Concomitant]
     Dosage: 1200 MILLIGRAM
     Route: 048
     Dates: start: 20110627, end: 20110630
  19. ACETAMINOPHEN [Concomitant]
     Indication: PAIN
     Dosage: 4 GRAM
     Route: 048
     Dates: end: 20110606
  20. LACTULOSE [Concomitant]
     Indication: CONSTIPATION
     Dosage: 30 MILLIGRAM/MILLILITERS
     Route: 048
     Dates: start: 20110603, end: 20110622
  21. PROCHLORPERAZINE TAB [Concomitant]
     Indication: NAUSEA
     Dosage: 5-10 MG
     Route: 048
     Dates: start: 20110606
  22. URAL [Concomitant]
     Indication: URINE ABNORMALITY
     Route: 048
     Dates: start: 20110617, end: 20110627
  23. APREPITAN [Concomitant]
     Dosage: 125 MILLIGRAM
     Route: 048
     Dates: start: 20110622, end: 20110622
  24. APREPITAN [Concomitant]
     Dosage: 80 MILLIGRAM
     Route: 048
     Dates: start: 20110626, end: 20110627
  25. PETER MAC MOUTHWASH [Concomitant]
     Dosage: 40 MILLIGRAM/MILLILITERS
     Route: 048
     Dates: start: 20110620
  26. PIPERACILLIN AND TAZOBACTAM [Concomitant]
     Indication: SEPSIS
     Dosage: 13.5 MILLIGRAM
     Route: 051
     Dates: start: 20110630
  27. ACETAMINOPHEN [Concomitant]
     Route: 048
     Dates: start: 20110622, end: 20110622
  28. OXYCONTIN [Concomitant]
     Dosage: 10 MILLIGRAM
     Route: 048
     Dates: start: 20110627
  29. THYROXIN [Concomitant]
     Dosage: 75 MICROGRAM
     Route: 048
  30. APREPITAN [Concomitant]
     Dosage: 125 MILLIGRAM
     Route: 048
     Dates: start: 20110625, end: 20110625
  31. FUROSEMIDE [Concomitant]
     Route: 051
     Dates: start: 20110702, end: 20110702
  32. APREPITAN [Concomitant]
     Dosage: 80 MILLIGRAM
     Route: 048
     Dates: start: 20110623, end: 20110624
  33. GENTAMICIN [Concomitant]
     Indication: SEPSIS
     Dosage: 300 MILLIGRAM
     Route: 051
     Dates: start: 20110623, end: 20110623
  34. FUROSEMIDE [Concomitant]
     Route: 048
     Dates: start: 20110629, end: 20110629
  35. FUROSEMIDE [Concomitant]
     Dosage: 20 MILLIGRAM
     Route: 051
     Dates: start: 20110701, end: 20110704
  36. CIPROFLOXACIN HCL [Concomitant]
     Indication: PSEUDOMONAS INFECTION
     Dosage: 1500 MILLIGRAM
     Route: 048
     Dates: start: 20110628, end: 20110628
  37. CIPROFLOXACIN HCL [Concomitant]
     Dosage: 1200 MILLIGRAM
     Route: 051
     Dates: start: 20110628, end: 20110630
  38. PANOBINOSTAT [Suspect]
     Dosage: 12.8571 MILLIGRAM
     Route: 065
     Dates: start: 20110610
  39. ESOMEPRAZOLE MAGNESIUM [Concomitant]
     Indication: GASTROOESOPHAGEAL REFLUX DISEASE
     Dosage: 20 MILLIGRAM
     Route: 048
  40. PERINDOPRIL [Concomitant]
     Indication: HYPERTENSION
     Route: 048
     Dates: end: 20110628
  41. SIMVASTATIN [Concomitant]
     Route: 048
     Dates: end: 20110607
  42. METOCLOPRAMIDE [Concomitant]
     Route: 048
     Dates: start: 20110615
  43. ACYCLOVIR [Concomitant]
     Indication: INFECTION PROPHYLAXIS
     Dosage: 800 MILLIGRAM
     Route: 048
     Dates: start: 20110611
  44. GENTAMICIN [Concomitant]
     Dosage: 200 MILLIGRAM
     Route: 051
     Dates: start: 20110624, end: 20110624
  45. PROMETHAZINE [Concomitant]
     Indication: RASH
     Route: 051
     Dates: start: 20110624, end: 20110625
  46. FUROSEMIDE [Concomitant]
     Dosage: 40 MILLIGRAM
     Route: 051
     Dates: start: 20110703, end: 20110703
  47. LORATADINE [Concomitant]
     Indication: RASH
     Dosage: 10 MILLIGRAM
     Route: 048
     Dates: start: 20110627
  48. LORAZEPAM [Concomitant]
     Indication: NAUSEA
     Dosage: 1 MILLIGRAM
     Dates: start: 20110630
  49. SYNTHAMIN WITH ELECTROLYTES [Concomitant]
     Indication: MALNUTRITION
     Dosage: 4000 MILLIGRAM/MILLILITERS
     Route: 051
     Dates: start: 20110629
  50. TROPISETRON [Concomitant]
     Indication: NAUSEA
     Dosage: 5 MILLIGRAM
     Route: 051
     Dates: start: 20110630
  51. OXYCONTIN [Concomitant]
     Dosage: 10 MILLIGRAM
     Route: 048
     Dates: start: 20110607, end: 20110623
  52. XALACOM [Concomitant]
     Dosage: 1 DROPS
     Route: 047
  53. BRIMONIDINE [Concomitant]
     Dosage: 2 DROPS
     Route: 047
  54. CHOLECALCIFEROL [Concomitant]
     Indication: BONE DISORDER
     Dosage: 25 MICROGRAM
     Route: 048
     Dates: end: 20110606
  55. CYCLIZINE [Concomitant]
     Dosage: 150 MILLIGRAM
     Route: 048
     Dates: start: 20110617
  56. CEPHALEXIN [Concomitant]
     Dosage: 4 GRAM
     Route: 048
     Dates: start: 20110617, end: 20110621
  57. AUGMENTIN DUO FORTE [Concomitant]
     Indication: PSEUDOMONAS INFECTION
     Dosage: 2 DOSAGE FORMS
     Route: 048
     Dates: start: 20110629, end: 20110629
  58. INTRALIPID 10% [Concomitant]
     Indication: MALNUTRITION
     Dosage: 4000 MILLIGRAM/MILLILITERS
     Route: 051
     Dates: start: 20110629
  59. VIDAZA [Suspect]
     Dosage: 136 MILLIGRAM
     Route: 065
     Dates: start: 20110706
  60. CALCIUM CARBONATE [Concomitant]
     Indication: BONE DISORDER
     Dosage: 600 MILLIGRAM
     Route: 048
     Dates: end: 20110606
  61. ALLOPURINOL [Concomitant]
     Indication: PROPHYLAXIS
     Dosage: 300 MILLIGRAM
     Route: 048
     Dates: start: 20110601, end: 20110623
  62. OXYCODONE HCL [Concomitant]
     Indication: PAIN
     Dosage: 20 MILLIGRAM
     Route: 048
     Dates: start: 20110601
  63. PROCHLORPERAZINE TAB [Concomitant]
     Dosage: 37.5 MILLIGRAM
     Route: 051
     Dates: start: 20110607
  64. URAL [Concomitant]
     Dosage: 4 DOSAGE FORMS
     Route: 048
     Dates: start: 20110618, end: 20110623
  65. CHLORVESCENT [Concomitant]
     Indication: HYPOKALAEMIA
     Route: 048
     Dates: start: 20110701, end: 20110701

REACTIONS (1)
  - HYPOXIA [None]
